FAERS Safety Report 19145707 (Version 2)
Quarter: 2021Q2

REPORT INFORMATION
  Report Type: Report from Study
  Country: CA (occurrence: CA)
  Receive Date: 20210416
  Receipt Date: 20210521
  Transmission Date: 20210717
  Serious: Yes (Other)
  Sender: FDA-Public Use
  Company Number: CA-JNJFOC-20210410023

PATIENT
  Age: 73 Year
  Sex: Male

DRUGS (1)
  1. BALVERSA [Suspect]
     Active Substance: ERDAFITINIB
     Indication: TRANSITIONAL CELL CARCINOMA
     Route: 048
     Dates: start: 20201109, end: 20210512

REACTIONS (6)
  - Nail pterygium [Unknown]
  - Dry eye [Unknown]
  - Blister [Unknown]
  - Eye infection [Recovering/Resolving]
  - Back pain [Unknown]
  - Stomatitis [Unknown]
